FAERS Safety Report 23589438 (Version 3)
Quarter: 2025Q3

REPORT INFORMATION
  Report Type: Spontaneous
  Country: US (occurrence: US)
  Receive Date: 20240304
  Receipt Date: 20250703
  Transmission Date: 20251020
  Serious: No
  Sender: SANOFI AVENTIS
  Company Number: US-SA-SAC20240226000943

PATIENT
  Age: 42 Year
  Sex: Male

DRUGS (1)
  1. DUPIXENT [Suspect]
     Active Substance: DUPILUMAB
     Indication: Nasal polyps
     Dosage: 300 MG, QOW
     Route: 058
     Dates: start: 202302

REACTIONS (12)
  - Cough [Unknown]
  - Wheezing [Unknown]
  - Condition aggravated [Unknown]
  - Nasal polyps [Unknown]
  - Sinonasal obstruction [Unknown]
  - Dizziness [Unknown]
  - Hypersensitivity [Unknown]
  - Epistaxis [Unknown]
  - Poor quality product administered [Unknown]
  - Discomfort [Unknown]
  - Rhinalgia [Unknown]
  - Product storage error [Unknown]

NARRATIVE: CASE EVENT DATE: 20240101
